FAERS Safety Report 7869179-3 (Version None)
Quarter: 2011Q4

REPORT INFORMATION
  Report Type: 
  Country: None (occurrence: None)
  Receive Date: 20111028
  Receipt Date: 20101228
  Transmission Date: 20120403
  Serious: Yes (Hospitalization)
  Sender: FDA-Public Use
  Company Number: US-AMGEN-USASP2010012019

PATIENT
  Age: 58 Year
  Sex: Male

DRUGS (3)
  1. PREDNISONE [Concomitant]
     Dosage: 2.5 MG, UNK
  2. PRILOSEC [Concomitant]
     Dosage: 10 MG, UNK
  3. ENBREL [Suspect]
     Indication: PRODUCT USED FOR UNKNOWN INDICATION
     Dosage: 1
     Route: 058

REACTIONS (3)
  - ASTHENIA [None]
  - MENINGITIS VIRAL [None]
  - DIARRHOEA [None]
